FAERS Safety Report 24146242 (Version 3)
Quarter: 2024Q4

REPORT INFORMATION
  Report Type: Spontaneous
  Country: CA (occurrence: CA)
  Receive Date: 20240729
  Receipt Date: 20241127
  Transmission Date: 20250115
  Serious: Yes (Life-Threatening, Hospitalization, Disabling, Other)
  Sender: BRISTOL-MYERS SQUIBB COMPANY
  Company Number: CA-BRISTOL-MYERS SQUIBB COMPANY-2024-114725

PATIENT
  Age: 44 Year
  Sex: Female

DRUGS (447)
  1. ORENCIA [Suspect]
     Active Substance: ABATACEPT
     Indication: Rheumatoid arthritis
  2. ORENCIA [Suspect]
     Active Substance: ABATACEPT
     Route: 015
  3. ORENCIA [Suspect]
     Active Substance: ABATACEPT
     Indication: Rheumatoid arthritis
     Route: 042
  4. ORENCIA [Suspect]
     Active Substance: ABATACEPT
     Route: 042
  5. ORENCIA [Suspect]
     Active Substance: ABATACEPT
     Indication: Rheumatoid arthritis
     Route: 058
  6. ORENCIA [Suspect]
     Active Substance: ABATACEPT
     Route: 058
  7. TRIAMCINOLONE ACETONIDE [Suspect]
     Active Substance: TRIAMCINOLONE ACETONIDE
     Indication: Rheumatoid arthritis
     Route: 014
  8. ACETAMINOPHEN [Concomitant]
     Active Substance: ACETAMINOPHEN
     Indication: Rheumatoid arthritis
  9. ACETAMINOPHEN [Concomitant]
     Active Substance: ACETAMINOPHEN
     Indication: Pyrexia
  10. ACETAMINOPHEN [Concomitant]
     Active Substance: ACETAMINOPHEN
     Indication: Pain
  11. ACETAMINOPHEN AND CODEINE [Concomitant]
     Active Substance: ACETAMINOPHEN\CODEINE PHOSPHATE
     Indication: Product used for unknown indication
  12. ACTEMRA [Concomitant]
     Active Substance: TOCILIZUMAB
     Indication: Rheumatoid arthritis
     Route: 042
  13. ACTEMRA [Concomitant]
     Active Substance: TOCILIZUMAB
     Route: 042
  14. ACTEMRA [Concomitant]
     Active Substance: TOCILIZUMAB
     Route: 042
  15. ACTEMRA [Concomitant]
     Active Substance: TOCILIZUMAB
     Route: 042
  16. ACTEMRA [Concomitant]
     Active Substance: TOCILIZUMAB
  17. ACTEMRA [Concomitant]
     Active Substance: TOCILIZUMAB
     Route: 058
  18. ACTEMRA [Concomitant]
     Active Substance: TOCILIZUMAB
     Route: 058
  19. ACTEMRA [Concomitant]
     Active Substance: TOCILIZUMAB
  20. ACTEMRA [Concomitant]
     Active Substance: TOCILIZUMAB
     Route: 048
  21. ACTEMRA [Concomitant]
     Active Substance: TOCILIZUMAB
     Route: 016
  22. ACTEMRA [Concomitant]
     Active Substance: TOCILIZUMAB
     Route: 058
  23. ACTEMRA [Concomitant]
     Active Substance: TOCILIZUMAB
     Route: 042
  24. ACTEMRA [Concomitant]
     Active Substance: TOCILIZUMAB
     Route: 042
  25. ACTEMRA [Concomitant]
     Active Substance: TOCILIZUMAB
  26. ACTEMRA [Concomitant]
     Active Substance: TOCILIZUMAB
     Route: 042
  27. ACTEMRA [Concomitant]
     Active Substance: TOCILIZUMAB
     Route: 042
  28. ACTEMRA [Concomitant]
     Active Substance: TOCILIZUMAB
     Route: 048
  29. ACTEMRA [Concomitant]
     Active Substance: TOCILIZUMAB
     Route: 042
  30. ACTEMRA [Concomitant]
     Active Substance: TOCILIZUMAB
     Route: 042
  31. ACTEMRA [Concomitant]
     Active Substance: TOCILIZUMAB
     Route: 042
  32. ACTEMRA [Concomitant]
     Active Substance: TOCILIZUMAB
  33. ACTEMRA [Concomitant]
     Active Substance: TOCILIZUMAB
  34. ACTEMRA [Concomitant]
     Active Substance: TOCILIZUMAB
     Route: 042
  35. ACTEMRA [Concomitant]
     Active Substance: TOCILIZUMAB
  36. ACTEMRA [Concomitant]
     Active Substance: TOCILIZUMAB
     Route: 058
  37. ACTEMRA [Concomitant]
     Active Substance: TOCILIZUMAB
     Route: 058
  38. ACTEMRA [Concomitant]
     Active Substance: TOCILIZUMAB
     Route: 016
  39. ADALIMUMAB [Concomitant]
     Active Substance: ADALIMUMAB
     Indication: Rheumatoid arthritis
     Route: 042
  40. ADALIMUMAB [Concomitant]
     Active Substance: ADALIMUMAB
     Indication: Psoriatic arthropathy
     Dosage: SOLYUTION SUBCUTANEOUS
     Route: 058
  41. ADALIMUMAB [Concomitant]
     Active Substance: ADALIMUMAB
     Route: 058
  42. ADALIMUMAB [Concomitant]
     Active Substance: ADALIMUMAB
     Route: 058
  43. ADALIMUMAB [Concomitant]
     Active Substance: ADALIMUMAB
     Route: 048
  44. ADALIMUMAB [Concomitant]
     Active Substance: ADALIMUMAB
  45. ADALIMUMAB [Concomitant]
     Active Substance: ADALIMUMAB
     Route: 058
  46. ADALIMUMAB [Concomitant]
     Active Substance: ADALIMUMAB
  47. ADALIMUMAB [Concomitant]
     Active Substance: ADALIMUMAB
     Route: 042
  48. ADALIMUMAB [Concomitant]
     Active Substance: ADALIMUMAB
  49. ADALIMUMAB [Concomitant]
     Active Substance: ADALIMUMAB
     Route: 058
  50. ALENDRONIC ACID [Concomitant]
     Active Substance: ALENDRONIC ACID
     Indication: Rheumatoid arthritis
  51. ALENDRONIC ACID [Concomitant]
     Active Substance: ALENDRONIC ACID
     Route: 048
  52. ALENDRONIC ACID [Concomitant]
     Active Substance: ALENDRONIC ACID
  53. ALENDRONIC ACID [Concomitant]
     Active Substance: ALENDRONIC ACID
     Route: 048
  54. DICLOFENAC SODIUM [Concomitant]
     Active Substance: DICLOFENAC SODIUM
     Indication: Product used for unknown indication
     Route: 048
  55. DICLOFENAC SODIUM [Concomitant]
     Active Substance: DICLOFENAC SODIUM
  56. DICLOFENAC SODIUM [Concomitant]
     Active Substance: DICLOFENAC SODIUM
     Route: 047
  57. DICLOFENAC SODIUM [Concomitant]
     Active Substance: DICLOFENAC SODIUM
  58. DICLOFENAC SODIUM [Concomitant]
     Active Substance: DICLOFENAC SODIUM
     Route: 048
  59. PREDNISONE [Concomitant]
     Active Substance: PREDNISONE
     Indication: Systemic lupus erythematosus
  60. PREDNISONE [Concomitant]
     Active Substance: PREDNISONE
     Indication: Synovitis
  61. PREDNISONE [Concomitant]
     Active Substance: PREDNISONE
     Indication: Rheumatoid arthritis
     Route: 048
  62. PREDNISONE [Concomitant]
     Active Substance: PREDNISONE
     Indication: Psoriatic arthropathy
  63. PREDNISONE [Concomitant]
     Active Substance: PREDNISONE
     Indication: Pemphigus
  64. PREDNISONE [Concomitant]
     Active Substance: PREDNISONE
     Indication: Inflammation
     Route: 048
  65. PREDNISONE [Concomitant]
     Active Substance: PREDNISONE
     Indication: Bursitis
     Route: 048
  66. PREDNISONE [Concomitant]
     Active Substance: PREDNISONE
  67. PREDNISONE [Concomitant]
     Active Substance: PREDNISONE
     Route: 048
  68. PREDNISONE [Concomitant]
     Active Substance: PREDNISONE
     Route: 048
  69. PREDNISONE [Concomitant]
     Active Substance: PREDNISONE
  70. PREDNISONE [Concomitant]
     Active Substance: PREDNISONE
  71. APREMILAST [Concomitant]
     Active Substance: APREMILAST
     Indication: Product used for unknown indication
     Route: 048
  72. APREMILAST [Concomitant]
     Active Substance: APREMILAST
  73. APREMILAST [Concomitant]
     Active Substance: APREMILAST
  74. APREMILAST [Concomitant]
     Active Substance: APREMILAST
     Route: 048
  75. APREMILAST [Concomitant]
     Active Substance: APREMILAST
  76. APREMILAST [Concomitant]
     Active Substance: APREMILAST
  77. APREPITANT [Concomitant]
     Active Substance: APREPITANT
     Indication: Product used for unknown indication
     Route: 048
  78. APREPITANT [Concomitant]
     Active Substance: APREPITANT
  79. APREPITANT [Concomitant]
     Active Substance: APREPITANT
  80. APREPITANT [Concomitant]
     Active Substance: APREPITANT
     Route: 042
  81. ARAVA [Concomitant]
     Active Substance: LEFLUNOMIDE
     Indication: Rheumatoid arthritis
     Route: 048
  82. ARAVA [Concomitant]
     Active Substance: LEFLUNOMIDE
     Route: 019
  83. ARAVA [Concomitant]
     Active Substance: LEFLUNOMIDE
     Route: 048
  84. ARAVA [Concomitant]
     Active Substance: LEFLUNOMIDE
     Route: 005
  85. ARAVA [Concomitant]
     Active Substance: LEFLUNOMIDE
     Route: 048
  86. ARAVA [Concomitant]
     Active Substance: LEFLUNOMIDE
     Route: 048
  87. ARAVA [Concomitant]
     Active Substance: LEFLUNOMIDE
     Route: 048
  88. ARAVA [Concomitant]
     Active Substance: LEFLUNOMIDE
     Route: 019
  89. ARAVA [Concomitant]
     Active Substance: LEFLUNOMIDE
     Route: 048
  90. ASACOL [Concomitant]
     Active Substance: MESALAMINE
     Indication: Product used for unknown indication
  91. CALCIUM CARBONATE [Concomitant]
     Active Substance: CALCIUM CARBONATE
     Indication: Product used for unknown indication
  92. CALCIUM GLUBIONATE [Concomitant]
     Active Substance: CALCIUM GLUBIONATE
     Indication: Product used for unknown indication
     Route: 016
  93. CELEBREX [Concomitant]
     Active Substance: CELECOXIB
     Indication: Arthritis
     Route: 048
  94. CELEBREX [Concomitant]
     Active Substance: CELECOXIB
  95. CELECOXIB [Concomitant]
     Active Substance: CELECOXIB
     Indication: Product used for unknown indication
     Route: 048
  96. CERTOLIZUMAB PEGOL [Concomitant]
     Active Substance: CERTOLIZUMAB PEGOL
     Indication: Product used for unknown indication
  97. CETIRIZINE HYDROCHLORIDE [Concomitant]
     Active Substance: CETIRIZINE HYDROCHLORIDE
     Indication: Rheumatoid arthritis
  98. CETIRIZINE HYDROCHLORIDE [Concomitant]
     Active Substance: CETIRIZINE HYDROCHLORIDE
     Indication: Off label use
     Route: 048
  99. CETIRIZINE HYDROCHLORIDE [Concomitant]
     Active Substance: CETIRIZINE HYDROCHLORIDE
     Route: 048
  100. CETIRIZINE HYDROCHLORIDE [Concomitant]
     Active Substance: CETIRIZINE HYDROCHLORIDE
     Route: 048
  101. CETIRIZINE HYDROCHLORIDE [Concomitant]
     Active Substance: CETIRIZINE HYDROCHLORIDE
     Route: 048
  102. CETIRIZINE HYDROCHLORIDE [Concomitant]
     Active Substance: CETIRIZINE HYDROCHLORIDE
     Route: 048
  103. CETIRIZINE HYDROCHLORIDE [Concomitant]
     Active Substance: CETIRIZINE HYDROCHLORIDE
     Route: 048
  104. CETIRIZINE HYDROCHLORIDE [Concomitant]
     Active Substance: CETIRIZINE HYDROCHLORIDE
     Route: 048
  105. CETIRIZINE HYDROCHLORIDE [Concomitant]
     Active Substance: CETIRIZINE HYDROCHLORIDE
  106. CHLORAPREP [Concomitant]
     Active Substance: CHLORHEXIDINE GLUCONATE\ISOPROPYL ALCOHOL
     Indication: Product used for unknown indication
     Route: 061
  107. CHLORHEXIDINE GLUCONATE [Concomitant]
     Active Substance: CHLORHEXIDINE GLUCONATE
     Indication: Product used for unknown indication
     Route: 061
  108. CHLORHEXIDINE GLUCONATE [Concomitant]
     Active Substance: CHLORHEXIDINE GLUCONATE
     Route: 002
  109. CHLORHEXIDINE GLUCONATE [Concomitant]
     Active Substance: CHLORHEXIDINE GLUCONATE
     Route: 048
  110. CHOLECALCIFEROL [Concomitant]
     Active Substance: CHOLECALCIFEROL
     Indication: Product used for unknown indication
  111. CHOLECALCIFEROL [Concomitant]
     Active Substance: CHOLECALCIFEROL
     Route: 016
  112. CIMZIA [Concomitant]
     Active Substance: CERTOLIZUMAB PEGOL
     Indication: Rheumatoid arthritis
     Route: 058
  113. CIMZIA [Concomitant]
     Active Substance: CERTOLIZUMAB PEGOL
  114. CIMZIA [Concomitant]
     Active Substance: CERTOLIZUMAB PEGOL
     Route: 058
  115. CIMZIA [Concomitant]
     Active Substance: CERTOLIZUMAB PEGOL
     Route: 058
  116. CIMZIA [Concomitant]
     Active Substance: CERTOLIZUMAB PEGOL
     Route: 058
  117. CIMZIA [Concomitant]
     Active Substance: CERTOLIZUMAB PEGOL
     Route: 058
  118. CIMZIA [Concomitant]
     Active Substance: CERTOLIZUMAB PEGOL
     Route: 058
  119. CIMZIA [Concomitant]
     Active Substance: CERTOLIZUMAB PEGOL
  120. CIMZIA [Concomitant]
     Active Substance: CERTOLIZUMAB PEGOL
     Route: 058
  121. CORTISONE ACETATE [Concomitant]
     Active Substance: CORTISONE ACETATE
     Indication: Rheumatoid arthritis
  122. CORTISONE ACETATE [Concomitant]
     Active Substance: CORTISONE ACETATE
  123. CORTISONE ACETATE [Concomitant]
     Active Substance: CORTISONE ACETATE
     Route: 061
  124. CORTISONE ACETATE [Concomitant]
     Active Substance: CORTISONE ACETATE
     Route: 048
  125. CORTISONE ACETATE [Concomitant]
     Active Substance: CORTISONE ACETATE
     Route: 061
  126. CORTISONE ACETATE [Concomitant]
     Active Substance: CORTISONE ACETATE
     Route: 048
  127. CORTISONE ACETATE [Concomitant]
     Active Substance: CORTISONE ACETATE
     Route: 061
  128. CORTISONE ACETATE [Concomitant]
     Active Substance: CORTISONE ACETATE
  129. CORTISONE ACETATE [Concomitant]
     Active Substance: CORTISONE ACETATE
  130. COSENTYX [Concomitant]
     Active Substance: SECUKINUMAB
     Indication: Rheumatoid arthritis
     Route: 005
  131. COSENTYX [Concomitant]
     Active Substance: SECUKINUMAB
     Indication: Psoriatic arthropathy
  132. COSENTYX [Concomitant]
     Active Substance: SECUKINUMAB
  133. DESOXIMETASONE [Concomitant]
     Active Substance: DESOXIMETASONE
     Indication: Rheumatoid arthritis
     Route: 058
  134. DESOXIMETASONE [Concomitant]
     Active Substance: DESOXIMETASONE
     Route: 061
  135. DESOXIMETASONE [Concomitant]
     Active Substance: DESOXIMETASONE
     Route: 058
  136. DESOXIMETASONE [Concomitant]
     Active Substance: DESOXIMETASONE
     Route: 048
  137. DESOXIMETASONE [Concomitant]
     Active Substance: DESOXIMETASONE
     Route: 003
  138. DESOXIMETASONE [Concomitant]
     Active Substance: DESOXIMETASONE
     Route: 048
  139. DESOXIMETASONE [Concomitant]
     Active Substance: DESOXIMETASONE
     Route: 003
  140. DESOXIMETASONE [Concomitant]
     Active Substance: DESOXIMETASONE
     Route: 042
  141. DESOXIMETASONE [Concomitant]
     Active Substance: DESOXIMETASONE
     Route: 016
  142. DESOXIMETASONE [Concomitant]
     Active Substance: DESOXIMETASONE
     Route: 003
  143. DESOXIMETASONE [Concomitant]
     Active Substance: DESOXIMETASONE
     Route: 048
  144. DESOXIMETASONE [Concomitant]
     Active Substance: DESOXIMETASONE
     Route: 003
  145. DESOXIMETASONE [Concomitant]
     Active Substance: DESOXIMETASONE
     Route: 016
  146. DESOXIMETASONE [Concomitant]
     Active Substance: DESOXIMETASONE
     Route: 003
  147. DESOXIMETASONE [Concomitant]
     Active Substance: DESOXIMETASONE
     Route: 048
  148. DESOXIMETASONE [Concomitant]
     Active Substance: DESOXIMETASONE
     Route: 048
  149. DESOXIMETASONE [Concomitant]
     Active Substance: DESOXIMETASONE
     Route: 048
  150. DESOXIMETASONE [Concomitant]
     Active Substance: DESOXIMETASONE
     Route: 061
  151. DESOXIMETASONE [Concomitant]
     Active Substance: DESOXIMETASONE
     Route: 042
  152. DESOXIMETASONE [Concomitant]
     Active Substance: DESOXIMETASONE
     Route: 058
  153. DICLOFENAC DIETHYLAMINE [Concomitant]
     Active Substance: DICLOFENAC DIETHYLAMINE
     Indication: Product used for unknown indication
  154. DICLOFENAC POTASSIUM [Concomitant]
     Active Substance: DICLOFENAC POTASSIUM
     Indication: Product used for unknown indication
     Route: 048
  155. DICLOFENAC POTASSIUM [Concomitant]
     Active Substance: DICLOFENAC POTASSIUM
  156. DICLOFENAC POTASSIUM [Concomitant]
     Active Substance: DICLOFENAC POTASSIUM
  157. DICLOFENAC POTASSIUM [Concomitant]
     Active Substance: DICLOFENAC POTASSIUM
  158. DICLOFENAC POTASSIUM [Concomitant]
     Active Substance: DICLOFENAC POTASSIUM
     Route: 050
  159. DICLOFENAC POTASSIUM [Concomitant]
     Active Substance: DICLOFENAC POTASSIUM
     Route: 048
  160. DICLOFENAC POTASSIUM [Concomitant]
     Active Substance: DICLOFENAC POTASSIUM
  161. DICLOFENAC SODIUM [Concomitant]
     Active Substance: DICLOFENAC SODIUM
     Indication: Product used for unknown indication
     Route: 058
  162. DICLOFENAC SODIUM [Concomitant]
     Active Substance: DICLOFENAC SODIUM
  163. DICLOFENAC SODIUM [Concomitant]
     Active Substance: DICLOFENAC SODIUM
     Route: 047
  164. DICLOFENAC SODIUM [Concomitant]
     Active Substance: DICLOFENAC SODIUM
  165. DICLOFENAC SODIUM [Concomitant]
     Active Substance: DICLOFENAC SODIUM
     Route: 047
  166. DICLOFENAC SODIUM [Concomitant]
     Active Substance: DICLOFENAC SODIUM
     Route: 047
  167. DICLOFENAC SODIUM [Concomitant]
     Active Substance: DICLOFENAC SODIUM
     Route: 058
  168. DICLOFENAC SODIUM [Concomitant]
     Active Substance: DICLOFENAC SODIUM
     Route: 048
  169. DICLOFENAC SODIUM [Concomitant]
     Active Substance: DICLOFENAC SODIUM
     Route: 050
  170. DICLOFENAC SODIUM [Concomitant]
     Active Substance: DICLOFENAC SODIUM
     Route: 047
  171. DICLOFENAC SODIUM [Concomitant]
     Active Substance: DICLOFENAC SODIUM
  172. DILTIAZEM HYDROCHLORIDE [Concomitant]
     Active Substance: DILTIAZEM HYDROCHLORIDE
     Indication: Product used for unknown indication
     Route: 042
  173. ENBREL [Concomitant]
     Active Substance: ETANERCEPT
     Indication: Rheumatoid arthritis
     Route: 058
  174. ENBREL [Concomitant]
     Active Substance: ETANERCEPT
     Indication: Psoriatic arthropathy
     Route: 058
  175. ENBREL [Concomitant]
     Active Substance: ETANERCEPT
     Route: 058
  176. ENBREL [Concomitant]
     Active Substance: ETANERCEPT
     Route: 058
  177. ENBREL [Concomitant]
     Active Substance: ETANERCEPT
     Route: 058
  178. ENTYVIO [Concomitant]
     Active Substance: VEDOLIZUMAB
     Indication: Product used for unknown indication
  179. ERELZI [Concomitant]
     Active Substance: ETANERCEPT-SZZS
     Indication: Rheumatoid arthritis
  180. FLUMETHASONE PIVALATE [Concomitant]
     Active Substance: FLUMETHASONE PIVALATE
     Indication: Rheumatoid arthritis
     Route: 003
  181. FLUMETHASONE PIVALATE [Concomitant]
     Active Substance: FLUMETHASONE PIVALATE
  182. FLUMETHASONE PIVALATE [Concomitant]
     Active Substance: FLUMETHASONE PIVALATE
  183. FOLIC ACID [Concomitant]
     Active Substance: FOLIC ACID
     Indication: Rheumatoid arthritis
     Route: 048
  184. FOLIC ACID [Concomitant]
     Active Substance: FOLIC ACID
     Route: 048
  185. FOLIC ACID [Concomitant]
     Active Substance: FOLIC ACID
     Route: 048
  186. FOLIC ACID [Concomitant]
     Active Substance: FOLIC ACID
     Route: 048
  187. FOLIC ACID [Concomitant]
     Active Substance: FOLIC ACID
     Route: 048
  188. FOLIC ACID [Concomitant]
     Active Substance: FOLIC ACID
     Route: 048
  189. FOLIC ACID [Concomitant]
     Active Substance: FOLIC ACID
  190. FOLIC ACID [Concomitant]
     Active Substance: FOLIC ACID
  191. FOLIC ACID [Concomitant]
     Active Substance: FOLIC ACID
  192. FOLIC ACID [Concomitant]
     Active Substance: FOLIC ACID
     Route: 048
  193. FOLIC ACID [Concomitant]
     Active Substance: FOLIC ACID
  194. FOLIC ACID [Concomitant]
     Active Substance: FOLIC ACID
     Route: 048
  195. FOLIC ACID [Concomitant]
     Active Substance: FOLIC ACID
     Route: 048
  196. FOLIC ACID [Concomitant]
     Active Substance: FOLIC ACID
     Route: 048
  197. FOLIC ACID [Concomitant]
     Active Substance: FOLIC ACID
     Route: 048
  198. FOLIC ACID [Concomitant]
     Active Substance: FOLIC ACID
     Route: 048
  199. FOLIC ACID [Concomitant]
     Active Substance: FOLIC ACID
     Route: 048
  200. FOLIC ACID [Concomitant]
     Active Substance: FOLIC ACID
  201. FOLIC ACID [Concomitant]
     Active Substance: FOLIC ACID
     Route: 048
  202. FOLIC ACID [Concomitant]
     Active Substance: FOLIC ACID
     Route: 048
  203. FOLIC ACID [Concomitant]
     Active Substance: FOLIC ACID
     Route: 048
  204. FOLIC ACID [Concomitant]
     Active Substance: FOLIC ACID
  205. FOLIC ACID [Concomitant]
     Active Substance: FOLIC ACID
     Route: 048
  206. FOSAMAX [Concomitant]
     Active Substance: ALENDRONATE SODIUM
     Indication: Rheumatoid arthritis
     Route: 048
  207. FOSAMAX [Concomitant]
     Active Substance: ALENDRONATE SODIUM
     Route: 005
  208. FOSAMAX [Concomitant]
     Active Substance: ALENDRONATE SODIUM
     Route: 058
  209. FOSAMAX [Concomitant]
     Active Substance: ALENDRONATE SODIUM
     Route: 016
  210. FOSAMAX [Concomitant]
     Active Substance: ALENDRONATE SODIUM
     Route: 048
  211. FOSAMAX [Concomitant]
     Active Substance: ALENDRONATE SODIUM
     Route: 016
  212. FOSAMAX [Concomitant]
     Active Substance: ALENDRONATE SODIUM
     Route: 005
  213. GOLIMUMAB [Concomitant]
     Active Substance: GOLIMUMAB
     Indication: Rheumatoid arthritis
     Route: 058
  214. GOLIMUMAB [Concomitant]
     Active Substance: GOLIMUMAB
  215. HUMIRA [Concomitant]
     Active Substance: ADALIMUMAB
     Indication: Rheumatoid arthritis
     Route: 058
  216. HUMIRA [Concomitant]
     Active Substance: ADALIMUMAB
     Indication: Psoriatic arthropathy
     Route: 058
  217. HUMIRA [Concomitant]
     Active Substance: ADALIMUMAB
     Route: 057
  218. HUMIRA [Concomitant]
     Active Substance: ADALIMUMAB
  219. HUMIRA [Concomitant]
     Active Substance: ADALIMUMAB
     Route: 058
  220. HUMIRA [Concomitant]
     Active Substance: ADALIMUMAB
     Route: 058
  221. HUMIRA [Concomitant]
     Active Substance: ADALIMUMAB
     Route: 058
  222. HUMIRA [Concomitant]
     Active Substance: ADALIMUMAB
     Route: 057
  223. HUMIRA [Concomitant]
     Active Substance: ADALIMUMAB
     Route: 058
  224. HUMIRA [Concomitant]
     Active Substance: ADALIMUMAB
  225. HYDROCORTISONE BUTYRATE [Concomitant]
     Active Substance: HYDROCORTISONE BUTYRATE
     Indication: Rheumatoid arthritis
     Route: 058
  226. HYDROCORTISONE BUTYRATE [Concomitant]
     Active Substance: HYDROCORTISONE BUTYRATE
     Route: 050
  227. HYDROCORTISONE BUTYRATE [Concomitant]
     Active Substance: HYDROCORTISONE BUTYRATE
  228. HYDROCORTISONE SODIUM SUCCINATE [Concomitant]
     Active Substance: HYDROCORTISONE SODIUM SUCCINATE
     Indication: Rheumatoid arthritis
  229. HYDROCORTISONE SODIUM SUCCINATE [Concomitant]
     Active Substance: HYDROCORTISONE SODIUM SUCCINATE
     Route: 048
  230. HYDROCORTISONE SODIUM SUCCINATE [Concomitant]
     Active Substance: HYDROCORTISONE SODIUM SUCCINATE
     Route: 003
  231. HYDROCORTISONE SODIUM SUCCINATE [Concomitant]
     Active Substance: HYDROCORTISONE SODIUM SUCCINATE
     Route: 061
  232. HYDROCORTISONE SODIUM SUCCINATE [Concomitant]
     Active Substance: HYDROCORTISONE SODIUM SUCCINATE
     Route: 058
  233. HYDROCORTISONE SODIUM SUCCINATE [Concomitant]
     Active Substance: HYDROCORTISONE SODIUM SUCCINATE
     Route: 048
  234. HYDROXYCHLOROQUINE SULFATE [Concomitant]
     Active Substance: HYDROXYCHLOROQUINE SULFATE
     Indication: Systemic lupus erythematosus
     Route: 058
  235. HYDROXYCHLOROQUINE SULFATE [Concomitant]
     Active Substance: HYDROXYCHLOROQUINE SULFATE
     Indication: Rheumatoid arthritis
     Route: 048
  236. HYDROXYCHLOROQUINE SULFATE [Concomitant]
     Active Substance: HYDROXYCHLOROQUINE SULFATE
  237. HYDROXYCHLOROQUINE SULFATE [Concomitant]
     Active Substance: HYDROXYCHLOROQUINE SULFATE
     Route: 048
  238. HYDROXYCHLOROQUINE SULFATE [Concomitant]
     Active Substance: HYDROXYCHLOROQUINE SULFATE
     Route: 048
  239. HYDROXYCHLOROQUINE SULFATE [Concomitant]
     Active Substance: HYDROXYCHLOROQUINE SULFATE
  240. HYDROXYCHLOROQUINE SULFATE [Concomitant]
     Active Substance: HYDROXYCHLOROQUINE SULFATE
     Route: 048
  241. HYDROXYCHLOROQUINE SULFATE [Concomitant]
     Active Substance: HYDROXYCHLOROQUINE SULFATE
     Route: 048
  242. HYDROXYCHLOROQUINE SULFATE [Concomitant]
     Active Substance: HYDROXYCHLOROQUINE SULFATE
  243. HYDROXYCHLOROQUINE SULFATE [Concomitant]
     Active Substance: HYDROXYCHLOROQUINE SULFATE
  244. INFLIXIMAB [Concomitant]
     Active Substance: INFLIXIMAB
     Indication: Rheumatoid arthritis
     Route: 042
  245. INFLIXIMAB [Concomitant]
     Active Substance: INFLIXIMAB
  246. INFLIXIMAB [Concomitant]
     Active Substance: INFLIXIMAB
     Route: 042
  247. INFLIXIMAB [Concomitant]
     Active Substance: INFLIXIMAB
     Route: 042
  248. INFLIXIMAB [Concomitant]
     Active Substance: INFLIXIMAB
  249. ISOPROPYL ALCOHOL [Concomitant]
     Active Substance: ISOPROPYL ALCOHOL
     Indication: Product used for unknown indication
     Dosage: LIQUID TOPICAL
  250. ISOPROPYL ALCOHOL [Concomitant]
     Active Substance: ISOPROPYL ALCOHOL
     Route: 061
  251. ISOPROPYL ALCOHOL [Concomitant]
     Active Substance: ISOPROPYL ALCOHOL
     Route: 061
  252. LEFLUNOMIDE [Concomitant]
     Active Substance: LEFLUNOMIDE
     Indication: Rheumatoid arthritis
     Route: 048
  253. LEFLUNOMIDE [Concomitant]
     Active Substance: LEFLUNOMIDE
     Route: 048
  254. LEFLUNOMIDE [Concomitant]
     Active Substance: LEFLUNOMIDE
     Route: 048
  255. LEFLUNOMIDE [Concomitant]
     Active Substance: LEFLUNOMIDE
  256. LISINOPRIL [Concomitant]
     Active Substance: LISINOPRIL
     Indication: Product used for unknown indication
  257. LYRICA [Concomitant]
     Active Substance: PREGABALIN
     Indication: Product used for unknown indication
  258. METHOTREXATE [Concomitant]
     Active Substance: METHOTREXATE
     Indication: Rheumatoid arthritis
  259. METHOTREXATE [Concomitant]
     Active Substance: METHOTREXATE
     Route: 048
  260. METHOTREXATE [Concomitant]
     Active Substance: METHOTREXATE
     Route: 048
  261. METHOTREXATE [Concomitant]
     Active Substance: METHOTREXATE
     Route: 058
  262. METHOTREXATE [Concomitant]
     Active Substance: METHOTREXATE
     Route: 013
  263. METHOTREXATE [Concomitant]
     Active Substance: METHOTREXATE
     Route: 048
  264. METHOTREXATE [Concomitant]
     Active Substance: METHOTREXATE
     Route: 048
  265. METHOTREXATE [Concomitant]
     Active Substance: METHOTREXATE
     Route: 013
  266. METHOTREXATE [Concomitant]
     Active Substance: METHOTREXATE
     Route: 048
  267. METHOTREXATE [Concomitant]
     Active Substance: METHOTREXATE
     Route: 048
  268. METHOTREXATE [Concomitant]
     Active Substance: METHOTREXATE
     Route: 048
  269. METHOTREXATE [Concomitant]
     Active Substance: METHOTREXATE
     Route: 058
  270. METHOTREXATE [Concomitant]
     Active Substance: METHOTREXATE
     Route: 058
  271. METHOTREXATE [Concomitant]
     Active Substance: METHOTREXATE
     Route: 042
  272. METHOTREXATE [Concomitant]
     Active Substance: METHOTREXATE
     Route: 048
  273. METHOTREXATE [Concomitant]
     Active Substance: METHOTREXATE
     Route: 048
  274. METHOTREXATE [Concomitant]
     Active Substance: METHOTREXATE
  275. METHOTREXATE [Concomitant]
     Active Substance: METHOTREXATE
  276. METHOTREXATE [Concomitant]
     Active Substance: METHOTREXATE
     Route: 048
  277. METHOTREXATE [Concomitant]
     Active Substance: METHOTREXATE
     Route: 058
  278. METHOTREXATE [Concomitant]
     Active Substance: METHOTREXATE
     Route: 013
  279. METHOTREXATE [Concomitant]
     Active Substance: METHOTREXATE
     Route: 048
  280. METHOTREXATE [Concomitant]
     Active Substance: METHOTREXATE
  281. METHOTREXATE [Concomitant]
     Active Substance: METHOTREXATE
  282. METHOTREXATE [Concomitant]
     Active Substance: METHOTREXATE
     Route: 058
  283. METHOTREXATE [Concomitant]
     Active Substance: METHOTREXATE
     Route: 048
  284. METHOTREXATE [Concomitant]
     Active Substance: METHOTREXATE
     Route: 048
  285. METHOTREXATE [Concomitant]
     Active Substance: METHOTREXATE
     Route: 048
  286. METHOTREXATE [Concomitant]
     Active Substance: METHOTREXATE
  287. METHOTREXATE [Concomitant]
     Active Substance: METHOTREXATE
     Route: 048
  288. METHOTREXATE [Concomitant]
     Active Substance: METHOTREXATE
  289. METHOTREXATE [Concomitant]
     Active Substance: METHOTREXATE
     Route: 048
  290. METHOTREXATE [Concomitant]
     Active Substance: METHOTREXATE
  291. METHOTREXATE [Concomitant]
     Active Substance: METHOTREXATE
  292. METHOTREXATE [Concomitant]
     Active Substance: METHOTREXATE
     Route: 058
  293. METHOTREXATE [Concomitant]
     Active Substance: METHOTREXATE
  294. METHOTREXATE [Concomitant]
     Active Substance: METHOTREXATE
  295. METHOTREXATE [Concomitant]
     Active Substance: METHOTREXATE
  296. METHOTREXATE [Concomitant]
     Active Substance: METHOTREXATE
     Route: 048
  297. METHOTREXATE [Concomitant]
     Active Substance: METHOTREXATE
     Route: 013
  298. METHOTREXATE [Concomitant]
     Active Substance: METHOTREXATE
  299. METHOTREXATE [Concomitant]
     Active Substance: METHOTREXATE
     Route: 048
  300. METHOTREXATE [Concomitant]
     Active Substance: METHOTREXATE
     Route: 048
  301. METHOTREXATE [Concomitant]
     Active Substance: METHOTREXATE
     Route: 013
  302. METHOTREXATE [Concomitant]
     Active Substance: METHOTREXATE
     Route: 042
  303. METHOTREXATE [Concomitant]
     Active Substance: METHOTREXATE
     Route: 048
  304. METHOTREXATE [Concomitant]
     Active Substance: METHOTREXATE
  305. METHOTREXATE [Concomitant]
     Active Substance: METHOTREXATE
     Route: 048
  306. METHOTREXATE [Concomitant]
     Active Substance: METHOTREXATE
     Route: 048
  307. METHOTREXATE [Concomitant]
     Active Substance: METHOTREXATE
     Route: 013
  308. MINOCYCLINE HYDROCHLORIDE [Concomitant]
     Active Substance: MINOCYCLINE HYDROCHLORIDE
     Indication: Product used for unknown indication
  309. MYCOPHENOLATE MOFETIL [Concomitant]
     Active Substance: MYCOPHENOLATE MOFETIL
     Indication: Product used for unknown indication
  310. NAPROXEN SODIUM [Concomitant]
     Active Substance: NAPROXEN SODIUM
     Indication: Rheumatoid arthritis
  311. NAPROXEN SODIUM [Concomitant]
     Active Substance: NAPROXEN SODIUM
  312. NAPROXEN SODIUM [Concomitant]
     Active Substance: NAPROXEN SODIUM
  313. NEOMYCIN [Concomitant]
     Active Substance: NEOMYCIN
     Indication: Product used for unknown indication
  314. OXYCODONE HYDROCHLORIDE [Concomitant]
     Active Substance: OXYCODONE HYDROCHLORIDE
     Indication: Product used for unknown indication
  315. PANTOPRAZOLE [Concomitant]
     Active Substance: PANTOPRAZOLE
     Indication: Product used for unknown indication
     Route: 016
  316. PANTOPRAZOLE [Concomitant]
     Active Substance: PANTOPRAZOLE
     Route: 048
  317. PARA-AMINOSALICYLIC ACID [Concomitant]
     Active Substance: AMINOSALICYLIC ACID
     Indication: Product used for unknown indication
  318. PERIOGARD [Concomitant]
     Active Substance: CHLORHEXIDINE GLUCONATE
     Indication: Product used for unknown indication
  319. PERIOGARD [Concomitant]
     Active Substance: CHLORHEXIDINE GLUCONATE
     Route: 048
  320. PERIOGARD [Concomitant]
     Active Substance: CHLORHEXIDINE GLUCONATE
     Route: 002
  321. PHTHALYLSULFATHIAZOLE [Concomitant]
     Active Substance: PHTHALYLSULFATHIAZOLE
     Indication: Rheumatoid arthritis
     Route: 048
  322. PHTHALYLSULFATHIAZOLE [Concomitant]
     Active Substance: PHTHALYLSULFATHIAZOLE
  323. PHTHALYLSULFATHIAZOLE [Concomitant]
     Active Substance: PHTHALYLSULFATHIAZOLE
  324. PHTHALYLSULFATHIAZOLE [Concomitant]
     Active Substance: PHTHALYLSULFATHIAZOLE
     Route: 058
  325. PHTHALYLSULFATHIAZOLE [Concomitant]
     Active Substance: PHTHALYLSULFATHIAZOLE
     Route: 048
  326. PHTHALYLSULFATHIAZOLE [Concomitant]
     Active Substance: PHTHALYLSULFATHIAZOLE
     Route: 048
  327. PHTHALYLSULFATHIAZOLE [Concomitant]
     Active Substance: PHTHALYLSULFATHIAZOLE
  328. PREDNISOLONE [Concomitant]
     Active Substance: PREDNISOLONE
     Indication: Product used for unknown indication
  329. PREDNISONE [Concomitant]
     Active Substance: PREDNISONE
     Indication: Rheumatoid arthritis
     Route: 048
  330. PREDNISONE [Concomitant]
     Active Substance: PREDNISONE
     Indication: Psoriatic arthropathy
     Route: 048
  331. PREDNISONE [Concomitant]
     Active Substance: PREDNISONE
     Indication: Condition aggravated
     Route: 048
  332. PREDNISONE [Concomitant]
     Active Substance: PREDNISONE
     Route: 048
  333. PREDNISONE [Concomitant]
     Active Substance: PREDNISONE
  334. PREDNISONE [Concomitant]
     Active Substance: PREDNISONE
  335. PREDNISONE [Concomitant]
     Active Substance: PREDNISONE
     Route: 048
  336. PREDNISONE [Concomitant]
     Active Substance: PREDNISONE
     Route: 048
  337. PREDNISONE [Concomitant]
     Active Substance: PREDNISONE
  338. PREDNISONE [Concomitant]
     Active Substance: PREDNISONE
     Route: 048
  339. PREDNISONE [Concomitant]
     Active Substance: PREDNISONE
     Route: 048
  340. PREGABALIN [Concomitant]
     Active Substance: PREGABALIN
     Indication: Product used for unknown indication
  341. PSEUDOEPHEDRINE HYDROCHLORIDE [Concomitant]
     Active Substance: PSEUDOEPHEDRINE HYDROCHLORIDE
     Indication: Rheumatoid arthritis
  342. PSEUDOEPHEDRINE HYDROCHLORIDE [Concomitant]
     Active Substance: PSEUDOEPHEDRINE HYDROCHLORIDE
  343. RAMIPRIL [Concomitant]
     Active Substance: RAMIPRIL
     Indication: Product used for unknown indication
  344. CETIRIZINE HYDROCHLORIDE\PSEUDOEPHEDRINE HYDROCHLORIDE [Concomitant]
     Active Substance: CETIRIZINE HYDROCHLORIDE\PSEUDOEPHEDRINE HYDROCHLORIDE
     Indication: Rheumatoid arthritis
  345. CETIRIZINE HYDROCHLORIDE\PSEUDOEPHEDRINE HYDROCHLORIDE [Concomitant]
     Active Substance: CETIRIZINE HYDROCHLORIDE\PSEUDOEPHEDRINE HYDROCHLORIDE
  346. CETIRIZINE HYDROCHLORIDE\PSEUDOEPHEDRINE HYDROCHLORIDE [Concomitant]
     Active Substance: CETIRIZINE HYDROCHLORIDE\PSEUDOEPHEDRINE HYDROCHLORIDE
     Route: 048
  347. CETIRIZINE HYDROCHLORIDE\PSEUDOEPHEDRINE HYDROCHLORIDE [Concomitant]
     Active Substance: CETIRIZINE HYDROCHLORIDE\PSEUDOEPHEDRINE HYDROCHLORIDE
     Route: 048
  348. CETIRIZINE HYDROCHLORIDE\PSEUDOEPHEDRINE HYDROCHLORIDE [Concomitant]
     Active Substance: CETIRIZINE HYDROCHLORIDE\PSEUDOEPHEDRINE HYDROCHLORIDE
     Route: 048
  349. CETIRIZINE HYDROCHLORIDE\PSEUDOEPHEDRINE HYDROCHLORIDE [Concomitant]
     Active Substance: CETIRIZINE HYDROCHLORIDE\PSEUDOEPHEDRINE HYDROCHLORIDE
     Route: 048
  350. REMICADE [Concomitant]
     Active Substance: INFLIXIMAB
     Indication: Rheumatoid arthritis
     Route: 042
  351. REMICADE [Concomitant]
     Active Substance: INFLIXIMAB
     Route: 042
  352. REMICADE [Concomitant]
     Active Substance: INFLIXIMAB
     Dosage: POWDER FOR SOLUTION INTRAVENOUS
     Route: 042
  353. REMICADE [Concomitant]
     Active Substance: INFLIXIMAB
     Route: 042
  354. REMICADE [Concomitant]
     Active Substance: INFLIXIMAB
     Route: 042
  355. RITUXIMAB [Concomitant]
     Active Substance: RITUXIMAB
     Indication: Rheumatoid arthritis
     Route: 058
  356. RITUXIMAB [Concomitant]
     Active Substance: RITUXIMAB
     Indication: Abdominal discomfort
     Route: 042
  357. RITUXIMAB [Concomitant]
     Active Substance: RITUXIMAB
  358. RITUXIMAB [Concomitant]
     Active Substance: RITUXIMAB
  359. RITUXIMAB [Concomitant]
     Active Substance: RITUXIMAB
     Route: 042
  360. RITUXIMAB [Concomitant]
     Active Substance: RITUXIMAB
     Route: 042
  361. SIMPONI [Concomitant]
     Active Substance: GOLIMUMAB
     Indication: Rheumatoid arthritis
     Dosage: SOLUTION SUBCUTANEOUS
     Route: 058
  362. SIMPONI [Concomitant]
     Active Substance: GOLIMUMAB
     Indication: Psoriatic arthropathy
     Route: 058
  363. SIMPONI [Concomitant]
     Active Substance: GOLIMUMAB
     Route: 042
  364. SIMPONI [Concomitant]
     Active Substance: GOLIMUMAB
     Route: 048
  365. SIMPONI [Concomitant]
     Active Substance: GOLIMUMAB
     Route: 052
  366. SIMPONI [Concomitant]
     Active Substance: GOLIMUMAB
     Route: 048
  367. SIMPONI [Concomitant]
     Active Substance: GOLIMUMAB
     Route: 058
  368. SIMPONI [Concomitant]
     Active Substance: GOLIMUMAB
     Route: 042
  369. SIMPONI [Concomitant]
     Active Substance: GOLIMUMAB
     Route: 052
  370. STELARA [Concomitant]
     Active Substance: USTEKINUMAB
     Indication: Product used for unknown indication
     Dosage: SOLTUION SUBCUTANEOUS
     Route: 042
  371. STELARA [Concomitant]
     Active Substance: USTEKINUMAB
     Route: 058
  372. STELARA [Concomitant]
     Active Substance: USTEKINUMAB
  373. STELARA [Concomitant]
     Active Substance: USTEKINUMAB
  374. STELARA [Concomitant]
     Active Substance: USTEKINUMAB
     Route: 058
  375. SULFAMETHOXAZOLE [Concomitant]
     Active Substance: SULFAMETHOXAZOLE
     Indication: Rheumatoid arthritis
  376. SULFAMETHOXAZOLE\TRIMETHOPRIM [Concomitant]
     Active Substance: SULFAMETHOXAZOLE\TRIMETHOPRIM
     Indication: Product used for unknown indication
     Route: 067
  377. SULFAMETHOXAZOLE\TRIMETHOPRIM [Concomitant]
     Active Substance: SULFAMETHOXAZOLE\TRIMETHOPRIM
  378. SULFASALAZINE [Concomitant]
     Active Substance: SULFASALAZINE
     Indication: Rheumatoid arthritis
     Route: 058
  379. SULFASALAZINE [Concomitant]
     Active Substance: SULFASALAZINE
     Route: 048
  380. SULFASALAZINE [Concomitant]
     Active Substance: SULFASALAZINE
     Route: 048
  381. SULFASALAZINE [Concomitant]
     Active Substance: SULFASALAZINE
     Route: 048
  382. SULFASALAZINE [Concomitant]
     Active Substance: SULFASALAZINE
  383. SULFASALAZINE [Concomitant]
     Active Substance: SULFASALAZINE
  384. SULFASALAZINE [Concomitant]
     Active Substance: SULFASALAZINE
     Route: 048
  385. SULFASALAZINE [Concomitant]
     Active Substance: SULFASALAZINE
     Route: 048
  386. SULFASALAZINE [Concomitant]
     Active Substance: SULFASALAZINE
  387. SULFASALAZINE [Concomitant]
     Active Substance: SULFASALAZINE
     Route: 048
  388. SULFASALAZINE [Concomitant]
     Active Substance: SULFASALAZINE
     Route: 048
  389. SULFASALAZINE [Concomitant]
     Active Substance: SULFASALAZINE
     Route: 048
  390. SULFASALAZINE [Concomitant]
     Active Substance: SULFASALAZINE
  391. SULFASALAZINE [Concomitant]
     Active Substance: SULFASALAZINE
     Route: 048
  392. TOCILIZUMAB [Concomitant]
     Active Substance: TOCILIZUMAB
     Indication: Rheumatoid arthritis
     Route: 042
  393. TOCILIZUMAB [Concomitant]
     Active Substance: TOCILIZUMAB
     Route: 058
  394. TOCILIZUMAB [Concomitant]
     Active Substance: TOCILIZUMAB
  395. TOFACITINIB CITRATE [Concomitant]
     Active Substance: TOFACITINIB CITRATE
     Indication: Rheumatoid arthritis
  396. TOFACITINIB CITRATE [Concomitant]
     Active Substance: TOFACITINIB CITRATE
     Indication: Psoriatic arthropathy
     Route: 048
  397. TOFACITINIB CITRATE [Concomitant]
     Active Substance: TOFACITINIB CITRATE
  398. TOFACITINIB CITRATE [Concomitant]
     Active Substance: TOFACITINIB CITRATE
     Route: 048
  399. TOFACITINIB CITRATE [Concomitant]
     Active Substance: TOFACITINIB CITRATE
     Route: 058
  400. TOFACITINIB CITRATE [Concomitant]
     Active Substance: TOFACITINIB CITRATE
  401. TOFACITINIB CITRATE [Concomitant]
     Active Substance: TOFACITINIB CITRATE
     Route: 048
  402. TOFACITINIB CITRATE [Concomitant]
     Active Substance: TOFACITINIB CITRATE
     Route: 048
  403. TOFACITINIB CITRATE [Concomitant]
     Active Substance: TOFACITINIB CITRATE
     Route: 058
  404. TRAMADOL HYDROCHLORIDE [Concomitant]
     Active Substance: TRAMADOL HYDROCHLORIDE
     Indication: Product used for unknown indication
  405. USTEKINUMAB [Concomitant]
     Active Substance: USTEKINUMAB
     Indication: Psoriatic arthropathy
  406. USTEKINUMAB [Concomitant]
     Active Substance: USTEKINUMAB
     Route: 042
  407. USTEKINUMAB [Concomitant]
     Active Substance: USTEKINUMAB
  408. VITAMIN C [Concomitant]
     Active Substance: ASCORBIC ACID
     Indication: Product used for unknown indication
  409. VITAMIN D3 [Concomitant]
     Active Substance: CHOLECALCIFEROL
     Indication: Product used for unknown indication
  410. PREDNISONE [Concomitant]
     Active Substance: PREDNISONE
     Indication: Rheumatoid arthritis
  411. PREDNISONE [Concomitant]
     Active Substance: PREDNISONE
     Route: 048
  412. PREDNISONE [Concomitant]
     Active Substance: PREDNISONE
  413. XELJANZ [Concomitant]
     Active Substance: TOFACITINIB CITRATE
     Indication: Rheumatoid arthritis
  414. XELJANZ [Concomitant]
     Active Substance: TOFACITINIB CITRATE
     Route: 048
  415. XELJANZ [Concomitant]
     Active Substance: TOFACITINIB CITRATE
     Route: 048
  416. XELJANZ [Concomitant]
     Active Substance: TOFACITINIB CITRATE
  417. XELJANZ [Concomitant]
     Active Substance: TOFACITINIB CITRATE
     Route: 048
  418. XELJANZ [Concomitant]
     Active Substance: TOFACITINIB CITRATE
     Route: 048
  419. XELJANZ [Concomitant]
     Active Substance: TOFACITINIB CITRATE
  420. XELJANZ [Concomitant]
     Active Substance: TOFACITINIB CITRATE
     Route: 016
  421. XELJANZ [Concomitant]
     Active Substance: TOFACITINIB CITRATE
     Route: 048
  422. XELJANZ [Concomitant]
     Active Substance: TOFACITINIB CITRATE
  423. XELJANZ [Concomitant]
     Active Substance: TOFACITINIB CITRATE
     Route: 048
  424. XELJANZ [Concomitant]
     Active Substance: TOFACITINIB CITRATE
  425. XELJANZ [Concomitant]
     Active Substance: TOFACITINIB CITRATE
     Route: 048
  426. XELJANZ [Concomitant]
     Active Substance: TOFACITINIB CITRATE
     Route: 016
  427. ACETAMINOPHEN\CODEINE PHOSPHATE [Concomitant]
     Active Substance: ACETAMINOPHEN\CODEINE PHOSPHATE
     Indication: Product used for unknown indication
  428. CHLORHEXIDINE [Concomitant]
     Active Substance: CHLORHEXIDINE
     Indication: Product used for unknown indication
     Route: 048
  429. CHLORHEXIDINE [Concomitant]
     Active Substance: CHLORHEXIDINE
     Route: 061
  430. CHLORHEXIDINE [Concomitant]
     Active Substance: CHLORHEXIDINE
     Route: 002
  431. DICLOFENAC [Concomitant]
     Active Substance: DICLOFENAC
     Indication: Product used for unknown indication
     Route: 047
  432. DICLOFENAC [Concomitant]
     Active Substance: DICLOFENAC
  433. DILTIAZEM [Concomitant]
     Active Substance: DILTIAZEM
     Indication: Product used for unknown indication
  434. HYDROCORTISONE [Concomitant]
     Active Substance: HYDROCORTISONE
     Indication: Rheumatoid arthritis
     Route: 048
  435. HYDROCORTISONE [Concomitant]
     Active Substance: HYDROCORTISONE
     Route: 058
  436. HYDROCORTISONE [Concomitant]
     Active Substance: HYDROCORTISONE
     Route: 003
  437. HYDROCORTISONE [Concomitant]
     Active Substance: HYDROCORTISONE
  438. HYDROCORTISONE [Concomitant]
     Active Substance: HYDROCORTISONE
     Route: 061
  439. HYDROXYCHLOROQUINE [Concomitant]
     Active Substance: HYDROXYCHLOROQUINE
     Indication: Rheumatoid arthritis
     Route: 048
  440. HYDROXYCHLOROQUINE [Concomitant]
     Active Substance: HYDROXYCHLOROQUINE
     Route: 048
  441. HYDROXYCHLOROQUINE [Concomitant]
     Active Substance: HYDROXYCHLOROQUINE
  442. HYDROXYCHLOROQUINE [Concomitant]
     Active Substance: HYDROXYCHLOROQUINE
     Route: 048
  443. HYDROXYCHLOROQUINE [Concomitant]
     Active Substance: HYDROXYCHLOROQUINE
  444. HYDROXYCHLOROQUINE [Concomitant]
     Active Substance: HYDROXYCHLOROQUINE
  445. OXYCODONE [Concomitant]
     Active Substance: OXYCODONE
     Indication: Product used for unknown indication
  446. PANTOPRAZOLE SODIUM [Concomitant]
     Active Substance: PANTOPRAZOLE SODIUM
     Indication: Product used for unknown indication
  447. PANTOPRAZOLE SODIUM [Concomitant]
     Active Substance: PANTOPRAZOLE SODIUM
     Route: 016

REACTIONS (12)
  - Osteoporosis [Unknown]
  - Pneumonia [Unknown]
  - Pulmonary fibrosis [Unknown]
  - Red blood cell sedimentation rate increased [Unknown]
  - Retinitis [Unknown]
  - Tachycardia [Unknown]
  - Therapeutic product effect incomplete [Unknown]
  - Thrombocytopenia [Unknown]
  - Visual impairment [Unknown]
  - Hospitalisation [Unknown]
  - Adverse event [Unknown]
  - Off label use [Unknown]
